FAERS Safety Report 25600674 (Version 1)
Quarter: 2025Q3

REPORT INFORMATION
  Report Type: Spontaneous
  Country: US (occurrence: None)
  Receive Date: 20250724
  Receipt Date: 20250724
  Transmission Date: 20251020
  Serious: No
  Sender: FDA-CTU
  Company Number: None

PATIENT
  Age: 71 Year
  Sex: Male
  Weight: 82.8 kg

DRUGS (1)
  1. RITUXIMAB [Suspect]
     Active Substance: RITUXIMAB
     Dates: end: 20221212

REACTIONS (2)
  - Basal cell carcinoma [None]
  - Second primary malignancy [None]

NARRATIVE: CASE EVENT DATE: 20221220
